FAERS Safety Report 8393183-2 (Version None)
Quarter: 2012Q2

REPORT INFORMATION
  Report Type: 
  Country: None (occurrence: None)
  Receive Date: 20120529
  Receipt Date: 20120518
  Transmission Date: 20120825
  Serious: No
  Sender: FDA-Public Use
  Company Number: US-ABBOTT-12P-163-0936620-00

PATIENT
  Sex: Male
  Weight: 65.83 kg

DRUGS (12)
  1. ISOSORBIDE MONO [Concomitant]
     Indication: CARDIAC DISORDER
  2. HYDRALAZINE HCL [Concomitant]
     Indication: CARDIAC DISORDER
  3. ANDROGEL [Suspect]
     Indication: BLOOD TESTOSTERONE DECREASED
     Dosage: 2 PUMPS PER DAY
     Dates: start: 20111101
  4. HYDRALAZINE HCL [Concomitant]
     Indication: RENAL DISORDER
  5. CALCITRIOL [Concomitant]
     Indication: RENAL DISORDER
  6. PATANOL [Concomitant]
     Indication: EYE ALLERGY
  7. PHENOBARBITAL TAB [Concomitant]
     Indication: CONVULSION
  8. MEGA RED FISH OIL SUPPLEMENT [Concomitant]
     Indication: PRODUCT USED FOR UNKNOWN INDICATION
  9. RAMPARIL [Concomitant]
     Indication: CARDIOMYOPATHY
  10. ALBUTEROL [Concomitant]
     Indication: ASTHMA
  11. ZYRTEC [Concomitant]
     Indication: SEASONAL ALLERGY
  12. LANOXIN [Concomitant]
     Indication: CARDIAC DISORDER

REACTIONS (1)
  - ACNE [None]
